FAERS Safety Report 17756290 (Version 1)
Quarter: 2020Q2

REPORT INFORMATION
  Report Type: Spontaneous
  Country: US (occurrence: US)
  Receive Date: 20200507
  Receipt Date: 20200507
  Transmission Date: 20200714
  Serious: Yes (Death, Other)
  Sender: FDA-Public Use
  Company Number: US-AMGEN-USASP2020069236

PATIENT
  Age: 92 Year
  Sex: Male

DRUGS (1)
  1. PROLIA [Suspect]
     Active Substance: DENOSUMAB
     Indication: OSTEOPOROSIS
     Dosage: 60 MILLIGRAM, Q6MO
     Route: 065

REACTIONS (6)
  - Bedridden [Unknown]
  - Adverse event [Unknown]
  - Surgery [Unknown]
  - Death [Fatal]
  - Osteoporosis [Unknown]
  - Kyphosis [Unknown]

NARRATIVE: CASE EVENT DATE: 20150130
